FAERS Safety Report 4390009-9 (Version None)
Quarter: 2004Q2

REPORT INFORMATION
  Report Type: 
  Country: None (occurrence: None)
  Receive Date: 20040630
  Receipt Date: 20040618
  Transmission Date: 20050107
  Serious: Yes (Hospitalization)
  Sender: FDA-Public Use
  Company Number: 2004041010

PATIENT
  Age: 34 Year
  Sex: Male

DRUGS (1)
  1. ZYRTEC [Suspect]
     Indication: HYPERSENSITIVITY

REACTIONS (3)
  - BLOOD URINE [None]
  - HAEMATOSPERMIA [None]
  - URINARY RETENTION [None]
